FAERS Safety Report 9639677 (Version 1)
Quarter: 2013Q4

REPORT INFORMATION
  Report Type: Spontaneous
  Country: US (occurrence: US)
  Receive Date: 20131023
  Receipt Date: 20131023
  Transmission Date: 20140711
  Serious: Yes (Other)
  Sender: FDA-Public Use
  Company Number: US-ASTRAZENECA-2013SE76264

PATIENT
  Age: 14 Year
  Sex: Male

DRUGS (1)
  1. PULMICORT RESPULES [Suspect]
     Indication: ASTHMA
     Dosage: 1MG IN 2ML
     Route: 055

REACTIONS (3)
  - Asthma [Not Recovered/Not Resolved]
  - Hypersensitivity [Unknown]
  - Off label use [Not Recovered/Not Resolved]
